FAERS Safety Report 24734501 (Version 4)
Quarter: 2025Q1

REPORT INFORMATION
  Report Type: Report from Study
  Country: CA (occurrence: CA)
  Receive Date: 20241214
  Receipt Date: 20250307
  Transmission Date: 20250408
  Serious: Yes (Other)
  Sender: TAKEDA
  Company Number: CA-TAKEDA-2024TUS122198

PATIENT
  Sex: Male

DRUGS (3)
  1. VEDOLIZUMAB [Suspect]
     Active Substance: VEDOLIZUMAB
     Indication: Colitis ulcerative
  2. VEDOLIZUMAB [Suspect]
     Active Substance: VEDOLIZUMAB
     Indication: Colitis ulcerative
     Dosage: 108 MILLIGRAM, Q2WEEKS
     Dates: start: 20241231
  3. MESALAMINE [Concomitant]
     Active Substance: MESALAMINE

REACTIONS (11)
  - Haematochezia [Unknown]
  - Rectal haemorrhage [Unknown]
  - Diarrhoea [Unknown]
  - Defaecation urgency [Unknown]
  - Anorectal discomfort [Unknown]
  - Weight decreased [Unknown]
  - Gastrointestinal pain [Unknown]
  - Frequent bowel movements [Unknown]
  - Injection site pain [Unknown]
  - Injection site mass [Unknown]
  - Cough [Unknown]
